FAERS Safety Report 6970464-8 (Version None)
Quarter: 2010Q3

REPORT INFORMATION
  Report Type: 
  Country: None (occurrence: None)
  Receive Date: 20100908
  Receipt Date: 20100831
  Transmission Date: 20110219
  Serious: Yes (Other)
  Sender: FDA-Public Use
  Company Number: US-ROCHE-715176

PATIENT
  Sex: Female
  Weight: 77.1 kg

DRUGS (7)
  1. BONIVA [Suspect]
     Indication: OSTEOPOROSIS
     Dosage: OTHER INDICATION: OSTEOPOROSIS SPINE/OSTEOPENIA HIP
     Route: 048
     Dates: start: 20070101
  2. ZOCOR [Concomitant]
     Route: 048
  3. ZANTAC [Concomitant]
     Route: 048
  4. XANAX [Concomitant]
  5. VICODIN [Concomitant]
  6. CLONIDINE [Concomitant]
     Indication: HYPERTENSION
     Route: 062
  7. CALCIUM [Concomitant]

REACTIONS (1)
  - HAND FRACTURE [None]
